FAERS Safety Report 20809755 (Version 1)
Quarter: 2022Q2

REPORT INFORMATION
  Report Type: Spontaneous
  Country: US (occurrence: None)
  Receive Date: 20220510
  Receipt Date: 20220510
  Transmission Date: 20220721
  Serious: Yes (Other)
  Sender: FDA-Public Use
  Company Number: None

PATIENT
  Age: 88 Year
  Sex: Female
  Weight: 74.1 kg

DRUGS (1)
  1. OFEV [Suspect]
     Active Substance: NINTEDANIB
     Indication: Pulmonary fibrosis
     Dosage: FREQUENCY : TWICE A DAY;?
     Route: 048
     Dates: start: 20220214, end: 20220417

REACTIONS (3)
  - Ecchymosis [None]
  - Pain [None]
  - Disease progression [None]

NARRATIVE: CASE EVENT DATE: 20220417
